FAERS Safety Report 9571604 (Version 1)
Quarter: 2013Q3

REPORT INFORMATION
  Report Type: Spontaneous
  Country: US (occurrence: None)
  Receive Date: 20130930
  Receipt Date: 20130930
  Transmission Date: 20140515
  Serious: Yes (Other)
  Sender: FDA-Public Use
  Company Number: None

PATIENT
  Age: 14 Year
  Sex: Male
  Weight: 105.9 kg

DRUGS (2)
  1. METFORMIN ER [Suspect]
     Indication: GLUCOSE TOLERANCE IMPAIRED
     Dosage: 3 TABS PO QD
     Route: 048
     Dates: start: 2012, end: 20130904
  2. METFORMIN ER [Suspect]
     Indication: BLOOD INSULIN INCREASED
     Dosage: 3 TABS PO QD
     Route: 048
     Dates: start: 2012, end: 20130904

REACTIONS (1)
  - Headache [None]
